FAERS Safety Report 9507853 (Version 1)
Quarter: 2013Q3

REPORT INFORMATION
  Report Type: Spontaneous
  Country: BR (occurrence: BR)
  Receive Date: 20130909
  Receipt Date: 20130909
  Transmission Date: 20140515
  Serious: Yes (Other)
  Sender: FDA-Public Use
  Company Number: BR-PFIZER INC-2013257097

PATIENT
  Age: 59 Year
  Sex: Male

DRUGS (7)
  1. PRISTIQ [Suspect]
     Indication: ANTIDEPRESSANT THERAPY
     Dosage: 50 MG, 1X/DAY
     Dates: start: 201306, end: 2013
  2. PRISTIQ [Suspect]
     Indication: CENTRAL NERVOUS SYSTEM LESION
     Dosage: UNK
     Dates: start: 2013, end: 201308
  3. CILOSTAZOL [Concomitant]
     Indication: LACUNAR INFARCTION
     Dosage: 50 MG, UNK
     Dates: start: 2011
  4. ALPRAZOLAM [Concomitant]
     Indication: CONFUSIONAL STATE
     Dosage: UNK
  5. RISPERIDONE [Concomitant]
     Indication: AGGRESSION
     Dosage: UNK
     Dates: end: 20130902
  6. RISPERIDONE [Concomitant]
     Indication: HOSTILITY
  7. PHENOBARBITAL [Concomitant]
     Dosage: 8 A 10 TABLETS OF 100 MG
     Dates: start: 20130816, end: 20130902

REACTIONS (8)
  - Off label use [Recovered/Resolved]
  - Cognitive disorder [Recovered/Resolved]
  - Amnesia [Recovered/Resolved]
  - Aggression [Not Recovered/Not Resolved]
  - Agitation [Recovered/Resolved]
  - Eating disorder [Recovered/Resolved]
  - Dyskinesia [Recovered/Resolved]
  - Activities of daily living impaired [Recovered/Resolved]
